FAERS Safety Report 6026582-4 (Version None)
Quarter: 2008Q4

REPORT INFORMATION
  Report Type: 
  Country: None (occurrence: None)
  Receive Date: 20081231
  Receipt Date: 20081216
  Transmission Date: 20090506
  Serious: Yes (Other)
  Sender: FDA-Public Use
  Company Number: 2008S1022554

PATIENT
  Age: 4 Decade
  Sex: Female

DRUGS (2)
  1. BYSTOLIC [Suspect]
     Indication: HYPERTENSION
     Dates: start: 20081212, end: 20081213
  2. CARDIZEM [Concomitant]

REACTIONS (2)
  - ANAPHYLACTIC REACTION [None]
  - DYSARTHRIA [None]
